FAERS Safety Report 4708267-7 (Version None)
Quarter: 2005Q3

REPORT INFORMATION
  Report Type: 
  Country: None (occurrence: None)
  Receive Date: 20050705
  Receipt Date: 20050705
  Transmission Date: 20060218
  Serious: No
  Sender: FDA-Public Use
  Company Number: None

PATIENT
  Sex: Male
  Weight: 80.8 kg

DRUGS (5)
  1. DAUNOMYCIN [Suspect]
     Indication: ACUTE LYMPHOCYTIC LEUKAEMIA
     Dosage: 60MG/M2 IVP ON DAYS 1, 8, 15, AND 22
     Dates: start: 20050325
  2. VINCRISTINE SULFATE [Suspect]
     Dosage: 1.4 MG/M2 IVP ON DAYS 1,8, 15, AND 22
  3. PREDNISONE [Suspect]
     Dosage: 60 MG/M2 PO QD FOR 28 DAYS
     Route: 048
  4. ELSPAR [Suspect]
     Dosage: 10000 UNIT/M2 IV OVER 30 MIN QD ON DAYS 17-28
     Route: 042
  5. METHOTREXATE [Suspect]
     Dosage: 12.5 MG IT ON DAY 15
     Route: 037

REACTIONS (2)
  - DIALYSIS [None]
  - TUMOUR LYSIS SYNDROME [None]
